FAERS Safety Report 6195025-2 (Version None)
Quarter: 2009Q2

REPORT INFORMATION
  Report Type: 
  Country: None (occurrence: None)
  Receive Date: 20090519
  Receipt Date: 20090504
  Transmission Date: 20091009
  Serious: Yes (Other)
  Sender: FDA-Public Use
  Company Number: B0573880A

PATIENT

DRUGS (3)
  1. WARFARIN SODIUM [Suspect]
     Route: 065
  2. AMOXICILLIN [Suspect]
  3. KONAKION [Concomitant]
     Dosage: 2MG PER DAY
     Route: 048

REACTIONS (3)
  - COAGULOPATHY [None]
  - DRUG INTERACTION [None]
  - INTERNATIONAL NORMALISED RATIO INCREASED [None]
